FAERS Safety Report 14038591 (Version 3)
Quarter: 2018Q1

REPORT INFORMATION
  Report Type: Spontaneous
  Country: RO (occurrence: RO)
  Receive Date: 20171004
  Receipt Date: 20180130
  Transmission Date: 20180508
  Serious: Yes (Other)
  Sender: FDA-Public Use
  Company Number: RO-JNJFOC-20170930318

PATIENT
  Age: 65 Year
  Sex: Male

DRUGS (4)
  1. GOSERELINUM [Concomitant]
     Indication: PROSTATE CANCER
     Route: 058
  2. ABIRATERONE [Suspect]
     Active Substance: ABIRATERONE
     Indication: PROSTATE CANCER METASTATIC
     Dosage: FOUR TABLETS PER DAY
     Route: 048
     Dates: start: 20170516
  3. ABIRATERONE [Suspect]
     Active Substance: ABIRATERONE
     Indication: PROSTATE CANCER
     Dosage: FOUR TABLETS PER DAY
     Route: 048
     Dates: start: 20170516
  4. PREDNISONE. [Concomitant]
     Active Substance: PREDNISONE
     Indication: PRODUCT USED FOR UNKNOWN INDICATION
     Route: 065

REACTIONS (4)
  - Drug ineffective [Unknown]
  - Prostatic specific antigen increased [Unknown]
  - Prostate cancer metastatic [Unknown]
  - Back pain [Unknown]
